FAERS Safety Report 7477038-3 (Version None)
Quarter: 2011Q2

REPORT INFORMATION
  Report Type: 
  Country: None (occurrence: None)
  Receive Date: 20110512
  Receipt Date: 20110511
  Transmission Date: 20111010
  Serious: Yes (Hospitalization)
  Sender: FDA-Public Use
  Company Number: GB-ALLERGAN-1009849US

PATIENT
  Age: 20 Year
  Sex: Female
  Weight: 47.6 kg

DRUGS (5)
  1. NAPROXEN [Concomitant]
     Indication: PRODUCT USED FOR UNKNOWN INDICATION
     Dosage: UNK
     Dates: start: 20100301, end: 20110420
  2. PRAGABALIN [Concomitant]
     Indication: PRODUCT USED FOR UNKNOWN INDICATION
     Dosage: UNK
     Dates: start: 20090701, end: 20110420
  3. BOTULINUM TOXIN TYPE A [Suspect]
     Indication: URINARY RETENTION
     Dosage: 100 UNITS, SINGLE
     Dates: start: 20100625, end: 20100625
  4. OXAZEPAM [Concomitant]
     Indication: PRODUCT USED FOR UNKNOWN INDICATION
     Dosage: 20 MG, QD
     Route: 048
     Dates: start: 20100301, end: 20110420
  5. BOTULINUM TOXIN TYPE A [Suspect]
     Indication: DYSURIA

REACTIONS (1)
  - MUSCLE TWITCHING [None]
